FAERS Safety Report 9060983 (Version 1)
Quarter: 2013Q1

REPORT INFORMATION
  Report Type: Spontaneous
  Country: DE (occurrence: DE)
  Receive Date: 20130213
  Receipt Date: 20130213
  Transmission Date: 20140127
  Serious: Yes (Other)
  Sender: FDA-Public Use
  Company Number: DE-009507513-1302DEU004533

PATIENT
  Sex: Male

DRUGS (1)
  1. INTRONA [Suspect]

REACTIONS (1)
  - Paralysis [Unknown]
